FAERS Safety Report 7346639-5 (Version None)
Quarter: 2011Q1

REPORT INFORMATION
  Report Type: 
  Country: None (occurrence: None)
  Receive Date: 20110228
  Receipt Date: 20110222
  Transmission Date: 20110831
  Serious: Yes (Hospitalization)
  Sender: FDA-Public Use
  Company Number: GER/UKI/11/0017489

PATIENT
  Age: 31 Year
  Sex: Female

DRUGS (3)
  1. OMEPRAZOLE [Suspect]
     Indication: PRODUCT USED FOR UNKNOWN INDICATION
     Dosage: ORAL
     Route: 048
     Dates: start: 20110110, end: 20110115
  2. METRONIDAZOLE [Concomitant]
  3. PENICILLIN (BENZYLPENICILLIN) [Concomitant]

REACTIONS (10)
  - HYPOPHAGIA [None]
  - VOMITING [None]
  - HEPATITIS A ANTIBODY POSITIVE [None]
  - WEIGHT DECREASED [None]
  - FOREIGN TRAVEL [None]
  - LIVER FUNCTION TEST ABNORMAL [None]
  - ABDOMINAL PAIN UPPER [None]
  - SCLERAL DISCOLOURATION [None]
  - HEPATITIS [None]
  - CHROMATURIA [None]
